FAERS Safety Report 17953513 (Version 1)
Quarter: 2020Q2

REPORT INFORMATION
  Report Type: Spontaneous
  Country: FI (occurrence: FI)
  Receive Date: 20200628
  Receipt Date: 20200628
  Transmission Date: 20200714
  Serious: Yes (Disabling)
  Sender: FDA-Public Use
  Company Number: NVSC2020FI176387

PATIENT
  Age: 78 Year
  Sex: Male

DRUGS (4)
  1. REVLIMID [Concomitant]
     Active Substance: LENALIDOMIDE
     Indication: PLASMA CELL MYELOMA
     Dosage: UNK
     Route: 065
     Dates: start: 201605
  2. VELCADE [Concomitant]
     Active Substance: BORTEZOMIB
     Indication: PLASMA CELL MYELOMA
     Dosage: UNK
     Route: 065
     Dates: start: 20130205
  3. DEXAMETASON [Concomitant]
     Active Substance: DEXAMETHASONE
     Indication: PLASMA CELL MYELOMA
     Dosage: UNK
     Route: 065
     Dates: start: 20130205
  4. ZOMETA [Suspect]
     Active Substance: ZOLEDRONIC ACID
     Indication: METASTASES TO BONE
     Dosage: UNK
     Route: 042
     Dates: start: 2013, end: 20170307

REACTIONS (1)
  - Osteonecrosis of jaw [Recovered/Resolved with Sequelae]

NARRATIVE: CASE EVENT DATE: 20170316
